FAERS Safety Report 15130547 (Version 2)
Quarter: 2018Q3

REPORT INFORMATION
  Report Type: Report from Study
  Country: CA (occurrence: CA)
  Receive Date: 20180711
  Receipt Date: 20180724
  Transmission Date: 20181010
  Serious: Yes (Other)
  Sender: FDA-Public Use
  Company Number: CA-JNJFOC-20180708360

PATIENT
  Age: 56 Year
  Sex: Female
  Weight: 57 kg

DRUGS (2)
  1. REMICADE [Suspect]
     Active Substance: INFLIXIMAB
     Indication: RHEUMATOID ARTHRITIS
     Dosage: DOSE GIVEN ON 04?JUL?2018
     Route: 042
     Dates: start: 20170926, end: 20180716
  2. REMICADE [Suspect]
     Active Substance: INFLIXIMAB
     Indication: RHEUMATOID ARTHRITIS
     Route: 042

REACTIONS (6)
  - Tremor [Recovered/Resolved]
  - Chronic obstructive pulmonary disease [Unknown]
  - Infusion related reaction [Recovered/Resolved]
  - Drug intolerance [Recovered/Resolved]
  - Depression [Unknown]
  - Diarrhoea [Recovered/Resolved]

NARRATIVE: CASE EVENT DATE: 20170909
